FAERS Safety Report 10076125 (Version 3)
Quarter: 2015Q3

REPORT INFORMATION
  Report Type: Spontaneous
  Country: US (occurrence: US)
  Receive Date: 20140414
  Receipt Date: 20150727
  Transmission Date: 20151125
  Serious: Yes (Hospitalization)
  Sender: FDA-Public Use
  Company Number: US-BAYER-2014-054165

PATIENT
  Age: 19 Year
  Sex: Female
  Weight: 87.98 kg

DRUGS (1)
  1. MIRENA [Suspect]
     Active Substance: LEVONORGESTREL
     Indication: CONTRACEPTION
     Dosage: 20 MCG/24HR, CONT
     Route: 015
     Dates: start: 201004, end: 20100628

REACTIONS (8)
  - Abdominal pain lower [None]
  - Post procedural discomfort [Not Recovered/Not Resolved]
  - Medical device pain [None]
  - Device issue [None]
  - Uterine perforation [None]
  - Off label use of device [None]
  - Procedural pain [Not Recovered/Not Resolved]
  - Injury [None]

NARRATIVE: CASE EVENT DATE: 2010
